FAERS Safety Report 5125174-9 (Version None)
Quarter: 2006Q4

REPORT INFORMATION
  Report Type: 
  Country: None (occurrence: None)
  Receive Date: 20061010
  Receipt Date: 20061010
  Transmission Date: 20070319
  Serious: Yes (Hospitalization)
  Sender: FDA-Public Use
  Company Number: None

PATIENT
  Age: 79 Year
  Sex: Male

DRUGS (7)
  1. GLIPIZIDE [Suspect]
     Indication: DIABETES MELLITUS NON-INSULIN-DEPENDENT
     Dosage: 5 MG QD
     Dates: start: 20060317
  2. ZOCOR [Concomitant]
  3. ISOSORBIDE [Concomitant]
  4. COUMADIN [Concomitant]
  5. METOPROLOL TARTRATE [Concomitant]
  6. OMEPRAZOLE [Concomitant]
  7. FOSINOPRIL SODIUM [Concomitant]

REACTIONS (1)
  - HYPOGLYCAEMIA [None]
